FAERS Safety Report 8615252-1 (Version None)
Quarter: 2012Q3

REPORT INFORMATION
  Report Type: 
  Country: None (occurrence: None)
  Receive Date: 20120823
  Receipt Date: 20120820
  Transmission Date: 20120928
  Serious: Yes (Other)
  Sender: FDA-Public Use
  Company Number: US-PFIZER INC-2012203834

PATIENT
  Sex: Male

DRUGS (1)
  1. LYRICA [Suspect]
     Indication: CONVULSION
     Dosage: UNK
     Route: 048

REACTIONS (2)
  - CONVULSION [None]
  - DRUG EFFECT DECREASED [None]
